FAERS Safety Report 14298959 (Version 1)
Quarter: 2017Q4

REPORT INFORMATION
  Report Type: Spontaneous
  Country: US (occurrence: US)
  Receive Date: 20171216
  Receipt Date: 20171216
  Transmission Date: 20180321
  Serious: Yes (Other)
  Sender: FDA-Public Use
  Company Number: None

PATIENT
  Age: 50 Year
  Sex: Female
  Weight: 64.35 kg

DRUGS (5)
  1. VITAMIN D [Concomitant]
     Active Substance: CHOLECALCIFEROL
  2. ESTRADIOL TRANSDERMAL SYSTEM [Suspect]
     Active Substance: ESTRADIOL
     Indication: MENOPAUSE
     Dosage: QUANTITY:1 PATCH(ES);OTHER FREQUENCY:ONCE A WEEK;?
     Route: 061
     Dates: start: 20171126, end: 20171209
  3. FISH OIL [Concomitant]
     Active Substance: FISH OIL
  4. ARMOUR THYROID [Concomitant]
     Active Substance: THYROID, PORCINE
  5. TUMERIC [Concomitant]
     Active Substance: HERBALS\TURMERIC

REACTIONS (4)
  - Application site irritation [None]
  - Application site inflammation [None]
  - Application site rash [None]
  - Product adhesion issue [None]

NARRATIVE: CASE EVENT DATE: 20171126
